FAERS Safety Report 17875552 (Version 2)
Quarter: 2020Q3

REPORT INFORMATION
  Report Type: Report from Study
  Country: TH (occurrence: TH)
  Receive Date: 20200609
  Receipt Date: 20200721
  Transmission Date: 20201103
  Serious: Yes (Death, Hospitalization)
  Sender: FDA-Public Use
  Company Number: NVSC2020TH159416

PATIENT
  Sex: Male

DRUGS (1)
  1. AFINITOR [Suspect]
     Active Substance: EVEROLIMUS
     Indication: METASTATIC RENAL CELL CARCINOMA
     Dosage: UNK
     Route: 048

REACTIONS (7)
  - Mucous stools [Fatal]
  - Haematochezia [Fatal]
  - Chest discomfort [Unknown]
  - Faeces discoloured [Fatal]
  - Dyspnoea [Fatal]
  - Pulmonary oedema [Unknown]
  - Fatigue [Unknown]
